FAERS Safety Report 10775816 (Version 5)
Quarter: 2015Q2

REPORT INFORMATION
  Report Type: Report from Study
  Country: DE (occurrence: DE)
  Receive Date: 20150209
  Receipt Date: 20150619
  Transmission Date: 20150821
  Serious: Yes (Hospitalization, Disabling)
  Sender: FDA-Public Use
  Company Number: DE-SA-2015SA013362

PATIENT
  Age: 44 Year
  Sex: Female
  Weight: 41 kg

DRUGS (3)
  1. ACICLOVIR [Concomitant]
     Active Substance: ACYCLOVIR
     Indication: PROPHYLAXIS
     Route: 048
     Dates: start: 20141208, end: 20150208
  2. CEFUROXIME. [Concomitant]
     Active Substance: CEFUROXIME
     Indication: COUGH
     Route: 048
     Dates: start: 20141220, end: 20141222
  3. LEMTRADA [Suspect]
     Active Substance: ALEMTUZUMAB
     Indication: RELAPSING-REMITTING MULTIPLE SCLEROSIS
     Route: 041
     Dates: start: 20141208, end: 20141212

REACTIONS (3)
  - Listeriosis [Recovered/Resolved]
  - Diarrhoea [Recovered/Resolved]
  - Leukocytosis [Unknown]

NARRATIVE: CASE EVENT DATE: 20141221
